FAERS Safety Report 6504714-9 (Version None)
Quarter: 2009Q4

REPORT INFORMATION
  Report Type: 
  Country: None (occurrence: None)
  Receive Date: 20091215
  Receipt Date: 20091201
  Transmission Date: 20100525
  Serious: Yes (Hospitalization)
  Sender: FDA-Public Use
  Company Number: 232344J09USA

PATIENT
  Age: 51 Year
  Sex: Male

DRUGS (6)
  1. REBIF [Suspect]
     Indication: MULTIPLE SCLEROSIS
     Dosage: 44 MCG, 3 IN 1 WEEKS, SUBCUTANEOUS
     Route: 058
     Dates: start: 20090721
  2. OXYBUTYNIN CHLORIDE [Concomitant]
  3. GABAPENTIN [Concomitant]
  4. LACTULOSE [Concomitant]
  5. STOOL SOFTENER (DOCUSATE SODIUM) [Concomitant]
  6. ALEVE [Concomitant]

REACTIONS (5)
  - GAIT DISTURBANCE [None]
  - HYPOAESTHESIA [None]
  - LOSS OF CONSCIOUSNESS [None]
  - SEPSIS [None]
  - URINARY TRACT INFECTION [None]
